FAERS Safety Report 18555835 (Version 1)
Quarter: 2020Q4

REPORT INFORMATION
  Report Type: Spontaneous
  Country: FR (occurrence: FR)
  Receive Date: 20201127
  Receipt Date: 20201127
  Transmission Date: 20210114
  Serious: Yes (Other)
  Sender: FDA-Public Use
  Company Number: FR-009507513-2011FRA015325

PATIENT
  Age: 67 Year
  Sex: Female
  Weight: 93 kg

DRUGS (13)
  1. KARDEGIC [Concomitant]
     Active Substance: ASPIRIN DL-LYSINE
     Dosage: UNK,POWDER FOR ORAL SOLUTION IN SINGLE-DOSE SACHET
  2. ESOMEPRAZOLE. [Concomitant]
     Active Substance: ESOMEPRAZOLE MAGNESIUM
     Dosage: UNK
  3. SIMVASTATIN. [Suspect]
     Active Substance: SIMVASTATIN
     Indication: CARDIOVASCULAR EVENT PROPHYLAXIS
     Dosage: 20 MILLIGRAM, QD
     Route: 048
     Dates: end: 20200529
  4. BISOPROLOL FUMARATE. [Concomitant]
     Active Substance: BISOPROLOL FUMARATE
     Dosage: UNK
  5. LYSANXIA [Concomitant]
     Active Substance: PRAZEPAM
     Dosage: UNK
  6. EZETIMIBE. [Concomitant]
     Active Substance: EZETIMIBE
     Dosage: UNK
  7. RAMIPRIL. [Concomitant]
     Active Substance: RAMIPRIL
     Dosage: UNK
  8. AMLODIPINE [Concomitant]
     Active Substance: AMLODIPINE BESYLATE
     Dosage: UNK
  9. JANUMET [Concomitant]
     Active Substance: METFORMIN HYDROCHLORIDE\SITAGLIPTIN PHOSPHATE
     Dosage: UNK
  10. TARDYFERON [Concomitant]
     Active Substance: FERROUS SULFATE
     Dosage: UNK
  11. IVABRADINE [Concomitant]
     Active Substance: IVABRADINE
     Dosage: UNK
  12. ACETAMINOPHEN. [Concomitant]
     Active Substance: ACETAMINOPHEN
     Dosage: UNK
  13. RISPERDAL [Concomitant]
     Active Substance: RISPERIDONE
     Dosage: UNK, SCORED FILM-COATE TABLET

REACTIONS (1)
  - Immune-mediated myositis [Unknown]

NARRATIVE: CASE EVENT DATE: 20200528
